FAERS Safety Report 16612268 (Version 1)
Quarter: 2019Q3

REPORT INFORMATION
  Report Type: Spontaneous
  Country: US (occurrence: US)
  Receive Date: 20190722
  Receipt Date: 20190722
  Transmission Date: 20191004
  Serious: No
  Sender: FDA-Public Use
  Company Number: US-FOUNDATIONCONSUMERHC-2019-US-009082

PATIENT
  Sex: Female

DRUGS (1)
  1. PLAN B ONE-STEP [Suspect]
     Active Substance: LEVONORGESTREL
     Indication: POST COITAL CONTRACEPTION
     Dosage: 2-3 TIMES PER MONTH
     Route: 065
     Dates: start: 201808

REACTIONS (4)
  - Anxiety [Unknown]
  - Feeling abnormal [Unknown]
  - Intentional product misuse [Unknown]
  - Mood swings [Unknown]

NARRATIVE: CASE EVENT DATE: 201808
